FAERS Safety Report 9366244 (Version 1)
Quarter: 2013Q2

REPORT INFORMATION
  Report Type: Spontaneous
  Country: US (occurrence: US)
  Receive Date: 20130625
  Receipt Date: 20130625
  Transmission Date: 20140414
  Serious: No
  Sender: FDA-Public Use
  Company Number: US-009507513-1305USA014147

PATIENT
  Age: 64 Year
  Sex: Male

DRUGS (2)
  1. NASONEX [Suspect]
     Indication: HYPERSENSITIVITY
     Dosage: 1 SPRAY IN EACH NOSTRIL ONCE A DAY
     Route: 045
     Dates: start: 200805
  2. STATIN (UNSPECIFIED) [Concomitant]

REACTIONS (5)
  - Nasal congestion [Not Recovered/Not Resolved]
  - Sneezing [Not Recovered/Not Resolved]
  - Underdose [Unknown]
  - Product container issue [Unknown]
  - Inappropriate schedule of drug administration [Unknown]
